FAERS Safety Report 15656409 (Version 1)
Quarter: 2018Q4

REPORT INFORMATION
  Report Type: Spontaneous
  Country: BR (occurrence: BR)
  Receive Date: 20181126
  Receipt Date: 20181126
  Transmission Date: 20190205
  Serious: Yes (Other)
  Sender: FDA-Public Use
  Company Number: BR-NOVOPROD-634565

PATIENT
  Sex: Female
  Weight: 49 kg

DRUGS (2)
  1. NOVORAPID [Suspect]
     Active Substance: INSULIN ASPART
     Indication: TYPE 1 DIABETES MELLITUS
     Dosage: 1 IU EACH 10G OF CARBOHYDRATE IN MEDIA 5 TIMES A DAY.
  2. LANTUS [Concomitant]
     Active Substance: INSULIN GLARGINE
     Indication: PRODUCT USED FOR UNKNOWN INDICATION
     Dosage: 30 IU, QD

REACTIONS (3)
  - Wrong technique in product usage process [Unknown]
  - Weight decreased [Not Recovered/Not Resolved]
  - Hyperglycaemia [Not Recovered/Not Resolved]
